FAERS Safety Report 9601689 (Version 1)
Quarter: 2013Q4

REPORT INFORMATION
  Report Type: Report from Study
  Country: US (occurrence: US)
  Receive Date: 20131007
  Receipt Date: 20131007
  Transmission Date: 20140711
  Serious: Yes (Hospitalization, Other)
  Sender: FDA-Public Use
  Company Number: US-ROCHE-1284945

PATIENT
  Age: 55 Year
  Sex: Female

DRUGS (22)
  1. XOLAIR [Suspect]
     Indication: ASTHMA
     Route: 065
     Dates: start: 2003, end: 200906
  2. XOLAIR [Suspect]
     Route: 065
  3. ADVAIR [Concomitant]
     Dosage: 500/50, ONE INHALATION
     Route: 048
  4. THEOPHYLLINE SR [Concomitant]
     Dosage: ^TAKE 3, 2 IN THE MORNING AND 1 IN THE PM^
     Route: 048
  5. SINGULAIR [Concomitant]
     Route: 048
  6. TRADJENTA [Concomitant]
     Route: 048
  7. PRAVASTATIN SODIUM [Concomitant]
     Dosage: ^EACH EVENING^
     Route: 048
  8. ALVESCO [Concomitant]
     Dosage: 160 MCG/ACT AERO SOLUTION - 2 INHALATION BY INHALATION
     Route: 055
  9. PROVENTIL HFA [Concomitant]
     Dosage: ^90 MCG/PER ACT AERO SOLUTION^
     Route: 055
  10. CHOLECALCIFEROL [Concomitant]
     Dosage: 2000 UNITS
     Route: 048
  11. PREDNISONE [Concomitant]
     Dosage: 3 PILLS
     Route: 065
  12. K-DUR [Concomitant]
     Dosage: 2 TABLETS IN AM, 1 TABLET IN PM
     Route: 065
  13. LASIX [Concomitant]
     Route: 048
  14. EPIPEN [Concomitant]
     Dosage: 0.3 MG/0.3 ML DEVICE, AS NEEDED FOR ALLERGIES
     Route: 030
  15. CYANOCOBALAMIN [Concomitant]
     Dosage: 1000 MCG/ML SOLUTION, INJECT ONE ML
     Route: 030
  16. VIACTIV [Concomitant]
     Dosage: ^500-100-40 MG-UNT-MCG CHEWABLE^
     Route: 048
  17. ALLEGRA [Concomitant]
     Route: 048
  18. AMBIEN [Concomitant]
     Dosage: ^TAKE ONE TABLET AT BEDTIME AS NEEDED FOR SLEEPLES
     Route: 048
  19. UNISOM (DOXYLAMINE) [Concomitant]
     Dosage: ^AT BEDTIME^
     Route: 048
  20. DUONEB [Concomitant]
     Dosage: 2.5-0.5 MG/3ML SOLUTION - INHALE 3 ML BY NEBULIZATION AS NEEDED FOR WHEEZING
     Route: 055
  21. TYLENOL PM [Concomitant]
     Dosage: ^TAKE 4 TABLETS^
     Route: 048
  22. PROVENTIL HFA [Concomitant]
     Dosage: 90 MCG/PER ACT AERO SOLUTION -  INHALE 2 PUFFS AS NEEDED FOR WHEEZING
     Route: 055

REACTIONS (4)
  - Laryngospasm [Unknown]
  - Anaphylactic reaction [Unknown]
  - Asthma [Unknown]
  - Asthma [Unknown]
